FAERS Safety Report 13299436 (Version 3)
Quarter: 2017Q3

REPORT INFORMATION
  Report Type: Spontaneous
  Country: GB (occurrence: GB)
  Receive Date: 20170306
  Receipt Date: 20170712
  Transmission Date: 20171127
  Serious: Yes (Life-Threatening, Hospitalization, Disabling, Other)
  Sender: FDA-Public Use
  Company Number: GB-PFIZER INC-2017093871

PATIENT
  Age: 38 Year
  Sex: Female
  Weight: 125 kg

DRUGS (5)
  1. TRANEXAMIC ACID. [Suspect]
     Active Substance: TRANEXAMIC ACID
     Indication: VAGINAL HAEMORRHAGE
     Dosage: 1 G, 3X/DAY
     Route: 048
  2. FERROUS FUMARATE [Concomitant]
     Active Substance: FERROUS FUMARATE
  3. CLARITHROMYCIN. [Concomitant]
     Active Substance: CLARITHROMYCIN
  4. IBUPROFEN. [Concomitant]
     Active Substance: IBUPROFEN
  5. NORETHISTERONE [Suspect]
     Active Substance: NORETHINDRONE
     Indication: VAGINAL HAEMORRHAGE
     Dosage: 5 MG, 3X/DAY
     Route: 048

REACTIONS (2)
  - Peripheral ischaemia [Not Recovered/Not Resolved]
  - Cerebral ischaemia [Not Recovered/Not Resolved]

NARRATIVE: CASE EVENT DATE: 20170207
